FAERS Safety Report 18490562 (Version 1)
Quarter: 2020Q4

REPORT INFORMATION
  Report Type: Report from Study
  Country: US (occurrence: US)
  Receive Date: 20201111
  Receipt Date: 20201111
  Transmission Date: 20210114
  Serious: Yes (Other)
  Sender: FDA-Public Use
  Company Number: US-BIOGEN-2020BI00944519

PATIENT
  Sex: Female

DRUGS (1)
  1. TYSABRI [Suspect]
     Active Substance: NATALIZUMAB
     Indication: MULTIPLE SCLEROSIS
     Dosage: INFUSED OVE ONE HOUR
     Route: 042
     Dates: start: 20070215

REACTIONS (3)
  - Infection susceptibility increased [Unknown]
  - Stress [Unknown]
  - Immunosuppression [Unknown]
